FAERS Safety Report 24156100 (Version 9)
Quarter: 2025Q2

REPORT INFORMATION
  Report Type: Spontaneous
  Country: PT (occurrence: PT)
  Receive Date: 20240731
  Receipt Date: 20250426
  Transmission Date: 20250717
  Serious: Yes (Life-Threatening, Hospitalization, Other)
  Sender: AUROBINDO
  Company Number: PT-MYLANLABS-2024M1066849

PATIENT
  Age: 65 Year
  Sex: Female

DRUGS (12)
  1. IBUPROFEN [Suspect]
     Active Substance: IBUPROFEN
     Indication: Toothache
     Route: 065
  2. IBUPROFEN [Suspect]
     Active Substance: IBUPROFEN
     Indication: Self-medication
  3. ACEMETACIN [Suspect]
     Active Substance: ACEMETACIN
     Indication: Toothache
     Route: 065
  4. ACEMETACIN [Suspect]
     Active Substance: ACEMETACIN
     Indication: Self-medication
  5. ACEMETACIN [Suspect]
     Active Substance: ACEMETACIN
     Indication: Toothache
  6. DEXKETOPROFEN [Suspect]
     Active Substance: DEXKETOPROFEN
     Indication: Toothache
     Route: 065
  7. DEXKETOPROFEN [Suspect]
     Active Substance: DEXKETOPROFEN
     Indication: Self-medication
  8. ACEMETACIN [Concomitant]
     Active Substance: ACEMETACIN
     Indication: Toothache
     Route: 065
  9. ACEMETACIN [Concomitant]
     Active Substance: ACEMETACIN
     Indication: Self-medication
  10. DEXKETOPROFEN [Concomitant]
     Active Substance: DEXKETOPROFEN
     Indication: Toothache
     Route: 065
  11. DEXKETOPROFEN [Concomitant]
     Active Substance: DEXKETOPROFEN
     Indication: Self-medication
  12. FLUCLOXACILLIN [Concomitant]
     Active Substance: FLUCLOXACILLIN
     Indication: Product used for unknown indication
     Route: 065

REACTIONS (5)
  - Agranulocytosis [Recovered/Resolved]
  - Nephropathy toxic [Recovered/Resolved]
  - Self-medication [Recovering/Resolving]
  - Idiosyncratic drug reaction [Recovering/Resolving]
  - Intentional product misuse [Recovering/Resolving]
